FAERS Safety Report 4928184-7 (Version None)
Quarter: 2006Q1

REPORT INFORMATION
  Report Type: 
  Country: None (occurrence: None)
  Receive Date: 20060223
  Receipt Date: 20060131
  Transmission Date: 20060701
  Serious: Yes (Life-Threatening, Hospitalization, Other)
  Sender: FDA-Public Use
  Company Number: CH200602000034

PATIENT
  Age: 63 Year
  Sex: Male

DRUGS (9)
  1. ZYPREXA [Suspect]
     Indication: DELUSIONAL DISORDER, UNSPECIFIED TYPE
     Dosage: 10 + 15 MG, DAILY (1/D), ORAL - SEE IMAGE
     Route: 048
     Dates: start: 20051208, end: 20051212
  2. ZYPREXA [Suspect]
     Indication: DELUSIONAL DISORDER, UNSPECIFIED TYPE
     Dosage: 10 + 15 MG, DAILY (1/D), ORAL - SEE IMAGE
     Route: 048
     Dates: start: 20051219, end: 20051220
  3. ZYPREXA [Suspect]
     Indication: DELUSIONAL DISORDER, UNSPECIFIED TYPE
     Dosage: 10 + 15 MG, DAILY (1/D), ORAL - SEE IMAGE
     Route: 048
     Dates: start: 20051221, end: 20051222
  4. HALDOL [Concomitant]
  5. DAPOTUM D FOR INJECTION (FLUPHENAZINE DECANOATE) [Concomitant]
  6. NOZINAN    /ENT/(LEVOMEPROMAZINE) [Concomitant]
  7. AKINETON [Concomitant]
  8. EPHYNAL [Concomitant]
  9. BETOLVEX (CYANOCOBALAMIN-TANNIN COMPLEX) [Concomitant]

REACTIONS (10)
  - ASPARTATE AMINOTRANSFERASE INCREASED [None]
  - BACK PAIN [None]
  - DRUG RESISTANCE [None]
  - NEUROLEPTIC MALIGNANT SYNDROME [None]
  - PARANOIA [None]
  - RESTLESSNESS [None]
  - TACHYPNOEA [None]
  - THERAPY NON-RESPONDER [None]
  - URINARY TRACT INFECTION [None]
  - URINARY TRACT INFECTION BACTERIAL [None]
